FAERS Safety Report 4990932-8 (Version None)
Quarter: 2006Q2

REPORT INFORMATION
  Report Type: 
  Country: None (occurrence: None)
  Receive Date: 20060503
  Receipt Date: 20051122
  Transmission Date: 20061013
  Serious: Yes (Hospitalization)
  Sender: FDA-Public Use
  Company Number: US-MERCK-0511USA03809

PATIENT
  Age: 70 Year
  Sex: Male

DRUGS (1)
  1. VIOXX [Suspect]
     Indication: OSTEOARTHRITIS
     Route: 048
     Dates: end: 20030423

REACTIONS (22)
  - ANGINA PECTORIS [None]
  - ARRHYTHMIA [None]
  - BLOOD PRESSURE INCREASED [None]
  - CARDIAC VALVE DISEASE [None]
  - COLONIC POLYP [None]
  - CORONARY ARTERY DISEASE [None]
  - CORONARY ARTERY OCCLUSION [None]
  - DIZZINESS [None]
  - DYSLIPIDAEMIA [None]
  - GOUT [None]
  - HEAD INJURY [None]
  - HEADACHE [None]
  - HYPERLIPIDAEMIA [None]
  - HYPOAESTHESIA [None]
  - MITRAL VALVE INCOMPETENCE [None]
  - MYOCARDIAL INFARCTION [None]
  - NOCTURIA [None]
  - PERIPHERAL VASCULAR DISORDER [None]
  - POLLAKIURIA [None]
  - SEASONAL ALLERGY [None]
  - TRICUSPID VALVE INCOMPETENCE [None]
  - URINARY INCONTINENCE [None]
